FAERS Safety Report 9323047 (Version 5)
Quarter: 2014Q1

REPORT INFORMATION
  Report Type: Report from Study
  Country: CA (occurrence: CA)
  Receive Date: 20130603
  Receipt Date: 20140117
  Transmission Date: 20141002
  Serious: Yes (Other)
  Sender: FDA-Public Use
  Company Number: CA-ROCHE-1229417

PATIENT
  Sex: Female
  Weight: 97 kg

DRUGS (9)
  1. ACTEMRA [Suspect]
     Indication: RHEUMATOID ARTHRITIS
     Route: 042
     Dates: start: 20120831
  2. ACTEMRA [Suspect]
     Route: 042
     Dates: start: 20121207
  3. IMURAN [Concomitant]
  4. CRESTOR [Concomitant]
  5. COZAAR [Concomitant]
  6. TYLENOL #3 (CANADA) [Concomitant]
     Route: 065
  7. METHOTREXATE [Concomitant]
     Route: 058
  8. FOLIC ACID [Concomitant]
  9. PREDNISONE [Concomitant]

REACTIONS (8)
  - Asthenia [Not Recovered/Not Resolved]
  - Drug ineffective [Unknown]
  - Drug effect decreased [Unknown]
  - Pain [Not Recovered/Not Resolved]
  - Musculoskeletal stiffness [Not Recovered/Not Resolved]
  - Joint swelling [Unknown]
  - Arthralgia [Unknown]
  - Drug ineffective [Unknown]
